FAERS Safety Report 5370146-2 (Version None)
Quarter: 2007Q2

REPORT INFORMATION
  Report Type: 
  Country: None (occurrence: None)
  Receive Date: 20070614
  Receipt Date: 20070501
  Transmission Date: 20071010
  Serious: Yes (Hospitalization)
  Sender: FDA-Public Use
  Company Number: BDI-009444

PATIENT
  Age: 57 Year
  Sex: Female

DRUGS (2)
  1. MULTIHANCE [Suspect]
     Indication: NUCLEAR MAGNETIC RESONANCE IMAGING BRAIN
     Dosage: 20 ML ONCE IV
     Route: 042
     Dates: start: 20070424, end: 20070424
  2. MULTIHANCE [Suspect]
     Indication: PAIN
     Dosage: 20 ML ONCE IV
     Route: 042
     Dates: start: 20070424, end: 20070424

REACTIONS (4)
  - DYSPNOEA [None]
  - ERYTHEMA [None]
  - EYE SWELLING [None]
  - URTICARIA [None]
